FAERS Safety Report 21533381 (Version 1)
Quarter: 2022Q4

REPORT INFORMATION
  Report Type: Spontaneous
  Country: AU (occurrence: AU)
  Receive Date: 20221101
  Receipt Date: 20221101
  Transmission Date: 20230112
  Serious: Yes (Other)
  Sender: FDA-Public Use
  Company Number: AU-SA-SAC20221031000079

PATIENT
  Age: 85 Year
  Sex: Female

DRUGS (5)
  1. DUPILUMAB [Suspect]
     Active Substance: DUPILUMAB
     Indication: Dermatitis atopic
     Dosage: UNK
     Route: 065
     Dates: start: 20220921
  2. CETIRIZINE [Concomitant]
     Active Substance: CETIRIZINE HYDROCHLORIDE
  3. CYPROHEPTADINE [Concomitant]
     Active Substance: CYPROHEPTADINE
  4. ZINC [Concomitant]
     Active Substance: ZINC
  5. VITAMIN D NOS [Concomitant]
     Active Substance: VITAMIN D NOS

REACTIONS (1)
  - Renal failure [Unknown]
